FAERS Safety Report 21965342 (Version 3)
Quarter: 2023Q2

REPORT INFORMATION
  Report Type: Other
  Country: PK (occurrence: None)
  Receive Date: 20230208
  Receipt Date: 20230607
  Transmission Date: 20230721
  Serious: Yes (Death)
  Sender: FDA-Public Use
  Company Number: PK-ROCHE-3280558

PATIENT
  Age: 31 Year
  Sex: Male

DRUGS (1)
  1. MABTHERA [Suspect]
     Active Substance: RITUXIMAB
     Indication: Diffuse large B-cell lymphoma
     Dosage: MABTHERA SC 1400MG FOR 8 CYCLES 3 WEEKLY IN DLBCL-AS PER PROTOCOL
     Route: 058
     Dates: start: 20221031, end: 20221215

REACTIONS (1)
  - Death [Fatal]

NARRATIVE: CASE EVENT DATE: 20221220
